FAERS Safety Report 22127552 (Version 1)
Quarter: 2023Q1

REPORT INFORMATION
  Report Type: Spontaneous
  Country: BR (occurrence: BR)
  Receive Date: 20230323
  Receipt Date: 20230323
  Transmission Date: 20230418
  Serious: Yes (Other)
  Sender: FDA-Public Use
  Company Number: BR-CELLTRION INC.-2023BR005887

PATIENT

DRUGS (1)
  1. TRUXIMA [Suspect]
     Active Substance: RITUXIMAB-ABBS
     Indication: Rheumatoid arthritis
     Dosage: USES 2 AMPOULES; AFTER 15 DAYS; SHE USES 2 MORE AMPOULES AND THE CYCLE IS DONE EVERY 6 MONTHS
     Route: 042
     Dates: start: 20230308

REACTIONS (2)
  - Laryngeal obstruction [Unknown]
  - Off label use [Unknown]

NARRATIVE: CASE EVENT DATE: 20230308
